FAERS Safety Report 7425669-9 (Version None)
Quarter: 2011Q2

REPORT INFORMATION
  Report Type: 
  Country: None (occurrence: None)
  Receive Date: 20110420
  Receipt Date: 20110411
  Transmission Date: 20111010
  Serious: Yes (Hospitalization, Other)
  Sender: FDA-Public Use
  Company Number: NL-MEDIMMUNE-MEDI-0013075

PATIENT
  Sex: Female
  Weight: 4.03 kg

DRUGS (6)
  1. SPIRONOLACTONE [Concomitant]
     Dates: start: 20110101, end: 20110330
  2. LACTULOSE [Concomitant]
     Dates: start: 20110101
  3. SYNAGIS [Suspect]
     Route: 030
     Dates: start: 20110411, end: 20110411
  4. CHLOROTHIAZIDE [Concomitant]
     Dates: start: 20110101
  5. SYNAGIS [Suspect]
     Route: 030
     Dates: start: 20110318, end: 20110318
  6. HYDROCHLOROTHIAZIDE [Concomitant]
     Dates: start: 20110101, end: 20110330

REACTIONS (3)
  - BOWEL MOVEMENT IRREGULARITY [None]
  - ILL-DEFINED DISORDER [None]
  - OLIGODIPSIA [None]
